FAERS Safety Report 20725319 (Version 4)
Quarter: 2023Q1

REPORT INFORMATION
  Report Type: Report from Study
  Country: BR (occurrence: BR)
  Receive Date: 20220419
  Receipt Date: 20230201
  Transmission Date: 20230418
  Serious: Yes (Other)
  Sender: FDA-Public Use
  Company Number: BR-BAYER-2022A052583

PATIENT
  Age: 34 Year
  Sex: Female
  Weight: 58 kg

DRUGS (14)
  1. NEXAVAR [Suspect]
     Active Substance: SORAFENIB
     Indication: Desmoid tumour
     Dosage: 2 DF, QD
     Dates: start: 202106, end: 202111
  2. NEXAVAR [Suspect]
     Active Substance: SORAFENIB
     Indication: Desmoid tumour
     Dosage: 2 DF, QD
     Dates: start: 20220310
  3. BUCLINA [Concomitant]
     Indication: Decreased appetite
     Dosage: 1 DF BEFORE MEALS
     Dates: start: 202109, end: 202111
  4. MORPHINE SULFATE [Concomitant]
     Active Substance: MORPHINE SULFATE
     Indication: Pain
     Dosage: 10 MG, Q4HR
     Dates: start: 20220310, end: 20220911
  5. TRAMADOL [Concomitant]
     Active Substance: TRAMADOL
     Indication: Pain
     Dosage: UNK
     Dates: end: 2020
  6. PAZOPANIB [Concomitant]
     Active Substance: PAZOPANIB
     Indication: Desmoid tumour
     Dosage: 800 MG, QD
     Dates: start: 202111, end: 202112
  7. HERBALS\TURMERIC [Concomitant]
     Active Substance: HERBALS\TURMERIC
     Dosage: 1 DF, BID
     Dates: start: 202109, end: 202111
  8. AMITRIPTYLINE [Concomitant]
     Active Substance: AMITRIPTYLINE
     Indication: Pain
     Dosage: UNK
     Dates: start: 2020
  9. AMITRIPTYLINE [Concomitant]
     Active Substance: AMITRIPTYLINE
     Indication: Hypotonia
  10. AMITRIPTYLINE [Concomitant]
     Active Substance: AMITRIPTYLINE
     Indication: Insomnia
  11. METADON [METHADONE HYDROCHLORIDE] [Concomitant]
     Indication: Pain
     Dosage: 10 MG, BID
     Dates: start: 2020
  12. METADON [METHADONE HYDROCHLORIDE] [Concomitant]
     Indication: Pain
     Dosage: 5 MG, BID
     Dates: start: 2022
  13. METADON [METHADONE HYDROCHLORIDE] [Concomitant]
     Indication: Pain
     Dosage: 5 MG, TID
  14. METAMIZOLE SODIUM [Concomitant]
     Active Substance: METAMIZOLE SODIUM
     Indication: Pain
     Dosage: 1 G, TID
     Dates: start: 2022

REACTIONS (12)
  - Arrhythmia [Recovered/Resolved]
  - Tumour pain [Not Recovered/Not Resolved]
  - Nausea [Recovered/Resolved]
  - Hypertension [Recovered/Resolved]
  - Rash macular [Not Recovered/Not Resolved]
  - Hyperkeratosis [Recovering/Resolving]
  - Skin wound [Recovering/Resolving]
  - Pain in extremity [Not Recovered/Not Resolved]
  - Decreased appetite [Not Recovered/Not Resolved]
  - Weight decreased [Not Recovered/Not Resolved]
  - Dry skin [None]
  - Alopecia [None]

NARRATIVE: CASE EVENT DATE: 20210601
